FAERS Safety Report 9070997 (Version 3)
Quarter: 2013Q4

REPORT INFORMATION
  Report Type: Spontaneous
  Country: JP (occurrence: JP)
  Receive Date: 20130129
  Receipt Date: 20131203
  Transmission Date: 20140711
  Serious: Yes (Other)
  Sender: FDA-Public Use
  Company Number: JP-GLAXOSMITHKLINE-B0862498A

PATIENT
  Age: 23 Year
  Sex: Female

DRUGS (9)
  1. ZOVIRAX [Suspect]
     Indication: PRODUCT USED FOR UNKNOWN INDICATION
     Route: 042
  2. ZOVIRAX [Suspect]
     Indication: PRODUCT USED FOR UNKNOWN INDICATION
     Route: 042
  3. PREDNISOLONE [Concomitant]
     Route: 065
  4. PREDNISOLONE [Concomitant]
     Route: 065
  5. PREDNISOLONE [Concomitant]
     Route: 065
  6. LANSOPRAZOLE [Concomitant]
     Route: 065
  7. VORICONAZOLE [Concomitant]
     Route: 065
  8. TACROLIMUS HYDRATE [Concomitant]
     Route: 065
  9. REBAMIPIDE [Concomitant]
     Route: 065

REACTIONS (5)
  - Cholestasis [Unknown]
  - Drug-induced liver injury [Unknown]
  - Jaundice [Unknown]
  - Hepatic enzyme increased [Unknown]
  - Rash [Unknown]
